FAERS Safety Report 7800915-8 (Version None)
Quarter: 2011Q4

REPORT INFORMATION
  Report Type: 
  Country: None (occurrence: None)
  Receive Date: 20111006
  Receipt Date: 20111003
  Transmission Date: 20120403
  Serious: Yes (Other)
  Sender: FDA-Public Use
  Company Number: US-BAYER-2011-091712

PATIENT
  Sex: Female

DRUGS (1)
  1. AVELOX [Suspect]

REACTIONS (5)
  - OCULAR HYPERAEMIA [None]
  - ANAPHYLACTIC REACTION [None]
  - HYPERHIDROSIS [None]
  - EYE SWELLING [None]
  - VOMITING [None]
